FAERS Safety Report 18034197 (Version 1)
Quarter: 2020Q3

REPORT INFORMATION
  Report Type: Spontaneous
  Country: US (occurrence: US)
  Receive Date: 20200716
  Receipt Date: 20200716
  Transmission Date: 20201103
  Serious: No
  Sender: FDA-Public Use
  Company Number: US-PFIZER INC-2020269240

PATIENT
  Age: 66 Year
  Sex: Female
  Weight: 61.23 kg

DRUGS (1)
  1. IBRANCE [Suspect]
     Active Substance: PALBOCICLIB
     Indication: BREAST CANCER STAGE IV
     Dosage: UNK
     Dates: start: 202006

REACTIONS (3)
  - Paraesthesia [Unknown]
  - Diarrhoea [Unknown]
  - Product packaging difficult to open [Unknown]
